FAERS Safety Report 15314009 (Version 1)
Quarter: 2018Q3

REPORT INFORMATION
  Report Type: Spontaneous
  Country: KR (occurrence: KR)
  Receive Date: 20180824
  Receipt Date: 20180824
  Transmission Date: 20181010
  Serious: Yes (Death, Other)
  Sender: FDA-Public Use
  Company Number: KR-009507513-1808KOR008805

PATIENT
  Sex: Male

DRUGS (1)
  1. KEYTRUDA [Suspect]
     Active Substance: PEMBROLIZUMAB
     Indication: GASTRIC CANCER
     Dosage: #1
     Dates: start: 20180702

REACTIONS (2)
  - Product use in unapproved indication [Unknown]
  - Gastric cancer [Fatal]

NARRATIVE: CASE EVENT DATE: 20180702
